FAERS Safety Report 15359912 (Version 1)
Quarter: 2018Q3

REPORT INFORMATION
  Report Type: Spontaneous
  Country: US (occurrence: US)
  Receive Date: 20180907
  Receipt Date: 20180907
  Transmission Date: 20181010
  Serious: Yes (Death, Hospitalization, Other)
  Sender: FDA-Public Use
  Company Number: US-LUPIN PHARMACEUTICALS INC.-2018-06198

PATIENT
  Sex: Female

DRUGS (1)
  1. METFORMIN [Suspect]
     Active Substance: METFORMIN HYDROCHLORIDE
     Indication: PRODUCT USED FOR UNKNOWN INDICATION
     Dosage: UNK
     Route: 065

REACTIONS (8)
  - Depressed level of consciousness [Fatal]
  - Anion gap [Fatal]
  - Acute kidney injury [Fatal]
  - Electrocardiogram QT prolonged [Fatal]
  - Hypotension [Fatal]
  - Toxicity to various agents [Fatal]
  - Coma [Fatal]
  - Metabolic acidosis [Fatal]
